FAERS Safety Report 5584979-0 (Version None)
Quarter: 2007Q4

REPORT INFORMATION
  Report Type: 
  Country: None (occurrence: None)
  Receive Date: 20071130
  Receipt Date: 20070517
  Transmission Date: 20080405
  Serious: Yes (Other)
  Sender: FDA-Public Use
  Company Number: WAES 0705USA03205

PATIENT
  Age: 78 Year
  Sex: Female

DRUGS (5)
  1. FOSAMAX [Suspect]
     Indication: OSTEOPOROSIS
     Dosage: 70 MG/WKY/PO
     Route: 048
     Dates: end: 20070517
  2. COUMADIN [Concomitant]
  3. CRESTOR [Concomitant]
  4. THYROID TAB [Concomitant]
  5. VERAPAMIL [Concomitant]

REACTIONS (1)
  - OSTEONECROSIS [None]
